FAERS Safety Report 9159284 (Version 1)
Quarter: 2013Q1

REPORT INFORMATION
  Report Type: Spontaneous
  Country: US (occurrence: None)
  Receive Date: 20130212
  Receipt Date: 20130212
  Transmission Date: 20140127
  Serious: Yes (Life-Threatening, Hospitalization, Disabling, Other)
  Sender: FDA-Public Use
  Company Number: 2013P1001832

PATIENT
  Age: 36 Year
  Sex: Male

DRUGS (7)
  1. MECLIZINE [Suspect]
     Indication: SUICIDE ATTEMPT
     Route: 048
  2. MECLIZINE [Suspect]
     Indication: SUICIDE ATTEMPT
     Route: 048
  3. MECLIZINE [Suspect]
     Route: 048
  4. MECLIZINE [Suspect]
     Route: 048
  5. PROMETHAZINE [Suspect]
  6. PREGABALIN [Suspect]
  7. METOPROLOL [Suspect]

REACTIONS (21)
  - Suicide attempt [None]
  - Lethargy [None]
  - Dysarthria [None]
  - Unresponsive to stimuli [None]
  - Hypotension [None]
  - Bradycardia [None]
  - Mydriasis [None]
  - Overdose [None]
  - Metabolic disorder [None]
  - Respiratory failure [None]
  - Toxicity to various agents [None]
  - Renal failure [None]
  - Adrenal insufficiency [None]
  - Hepatic ischaemia [None]
  - Haemodialysis [None]
  - Sepsis [None]
  - Blindness [None]
  - Brain injury [None]
  - Pulse absent [None]
  - Refusal of treatment by patient [None]
  - Pupillary reflex impaired [None]
